FAERS Safety Report 20461418 (Version 3)
Quarter: 2022Q4

REPORT INFORMATION
  Report Type: Report from Study
  Country: DE (occurrence: DE)
  Receive Date: 20220211
  Receipt Date: 20221117
  Transmission Date: 20230112
  Serious: Yes (Hospitalization, Other)
  Sender: FDA-Public Use
  Company Number: DE-JNJFOC-20220211287

PATIENT
  Age: 8 Decade
  Sex: Female
  Weight: 74 kg

DRUGS (2)
  1. DARATUMUMAB [Suspect]
     Active Substance: DARATUMUMAB
     Indication: Plasma cell myeloma
     Dosage: DATE OF THE LAST DOSAGE BEFORE EVENT ONSET: 18-JAN-2022
     Route: 041
     Dates: start: 20211207, end: 20220315
  2. REVLIMID [Suspect]
     Active Substance: LENALIDOMIDE
     Indication: Plasma cell myeloma
     Dosage: DATE OF THE LAST DOSAGE BEFORE EVENT ONSET: 19-JAN-2022.?LAST DOSAGE BEFORE EVENT ONSET (MG): 20
     Route: 065
     Dates: start: 20211006, end: 20220120

REACTIONS (2)
  - Atrial fibrillation [Recovering/Resolving]
  - Pulmonary oedema [Unknown]

NARRATIVE: CASE EVENT DATE: 20220124
